FAERS Safety Report 6907293-7 (Version None)
Quarter: 2010Q3

REPORT INFORMATION
  Report Type: 
  Country: None (occurrence: None)
  Receive Date: 20100730
  Receipt Date: 20100715
  Transmission Date: 20110219
  Serious: Yes (Death, Hospitalization)
  Sender: FDA-Public Use
  Company Number: 2009AC000226

PATIENT
  Age: 66 Year
  Sex: Male

DRUGS (30)
  1. DIGOXIN [Suspect]
     Dosage: PO
     Route: 048
     Dates: start: 20040520
  2. DIGOXIN [Suspect]
     Dosage: .125 MG; QD; PO
     Route: 048
     Dates: start: 20040517, end: 20050525
  3. DIGOXIN [Suspect]
     Dosage: ; PO
     Route: 048
     Dates: start: 20030601, end: 20030601
  4. DIGOXIN [Suspect]
     Dosage: ; PO
     Route: 048
     Dates: start: 20050601, end: 20071001
  5. ALACARE [Concomitant]
  6. LORTAB [Concomitant]
  7. PRILOSEC [Concomitant]
  8. ACETAMINOPHEN [Concomitant]
  9. PEPCID [Concomitant]
  10. HYDROCHLOROTHIAZIDE [Concomitant]
  11. TOPROL-XL [Concomitant]
  12. DIOVAN [Concomitant]
  13. IMDUR [Concomitant]
  14. HYDRALAZINE HCL [Concomitant]
  15. PLAVIX [Concomitant]
  16. LEVAQUIN [Concomitant]
  17. METHOCARBAMOL [Concomitant]
  18. DARVOCET [Concomitant]
  19. MACROBID [Concomitant]
  20. ACETAMINOPHEN [Concomitant]
  21. DIFLUCAN [Concomitant]
  22. PROTONIX [Concomitant]
  23. ZEGERID [Concomitant]
  24. MIRALAX [Concomitant]
  25. ZOSYN [Concomitant]
  26. BACTRIM DS [Concomitant]
  27. SPIRONOLACTONE [Concomitant]
  28. POTASSIUM [Concomitant]
  29. *ICAR-C [Concomitant]
  30. LASIX [Concomitant]

REACTIONS (35)
  - AORTIC ARTERIOSCLEROSIS [None]
  - AORTIC VALVE INCOMPETENCE [None]
  - ASTHENIA [None]
  - BLOOD PRESSURE FLUCTUATION [None]
  - CANDIDURIA [None]
  - CAROTID ARTERY STENOSIS [None]
  - CEREBROVASCULAR ACCIDENT [None]
  - CHEST DISCOMFORT [None]
  - CHILLS [None]
  - COLITIS [None]
  - DECREASED APPETITE [None]
  - DEVICE RELATED INFECTION [None]
  - DIZZINESS [None]
  - DYSPEPSIA [None]
  - DYSPNOEA [None]
  - ECONOMIC PROBLEM [None]
  - EYE INFECTION FUNGAL [None]
  - GAIT DISTURBANCE [None]
  - GASTROOESOPHAGEAL REFLUX DISEASE [None]
  - HYPERHIDROSIS [None]
  - HYPERTENSION [None]
  - HYPOKALAEMIA [None]
  - HYPOTENSION [None]
  - INJURY [None]
  - MEDICAL DEVICE COMPLICATION [None]
  - MEMORY IMPAIRMENT [None]
  - MENTAL STATUS CHANGES [None]
  - METABOLIC ACIDOSIS [None]
  - NAUSEA [None]
  - PYELONEPHRITIS ACUTE [None]
  - RENAL FAILURE ACUTE [None]
  - SKIN ULCER [None]
  - URINARY TRACT INFECTION [None]
  - UROSEPSIS [None]
  - VOMITING [None]
